FAERS Safety Report 6759904-7 (Version None)
Quarter: 2010Q2

REPORT INFORMATION
  Report Type: 
  Country: None (occurrence: None)
  Receive Date: 20100604
  Receipt Date: 20100525
  Transmission Date: 20101027
  Serious: No
  Sender: FDA-Public Use
  Company Number: 008987

PATIENT
  Age: 84 Year
  Sex: Male

DRUGS (8)
  1. PLETAL [Suspect]
     Indication: ARTERIAL OCCLUSIVE DISEASE
     Dosage: 100 MG, BID ORAL
     Route: 048
     Dates: start: 20091014, end: 20091021
  2. CRESTOR (ROSUVASTATIN) TABLET [Concomitant]
  3. HARNAL D (TAMSULOSIN HYDROCHLORIDE) TABLET [Concomitant]
  4. PROSTAL (CHLORMADINONE ACETATE) TABLET [Concomitant]
  5. CONIEL (BENIDIPINE HYDROCHLORIDE) TABLET [Concomitant]
  6. ARICEPT D (DONEPEZIL HYDROCHLORIDE) TABLET [Concomitant]
  7. STAYBLA (IMIDAFENACIN) TABLET [Concomitant]
  8. ZETIA (EZETIMIBE) TABLET [Concomitant]

REACTIONS (6)
  - ANAEMIA [None]
  - CARDIAC FAILURE [None]
  - DEPRESSED LEVEL OF CONSCIOUSNESS [None]
  - DYSSTASIA [None]
  - FAECAL INCONTINENCE [None]
  - HEART RATE INCREASED [None]
